FAERS Safety Report 4480009-2 (Version None)
Quarter: 2004Q4

REPORT INFORMATION
  Report Type: 
  Country: None (occurrence: None)
  Receive Date: 20041018
  Receipt Date: 20040930
  Transmission Date: 20050328
  Serious: Yes (Death, Hospitalization)
  Sender: FDA-Public Use
  Company Number: DSA_25083_2004

PATIENT
  Age: 45 Year
  Sex: Male

DRUGS (3)
  1. DILTIAZEM [Suspect]
     Dosage: DF   PO
     Route: 048
  2. AMITRIPTYLINE HCL [Suspect]
     Dosage: DF  PO
     Route: 048
  3. ACTIVATED CHARCOAL [Suspect]
     Dosage: DF

REACTIONS (12)
  - BLOOD PRESSURE DECREASED [None]
  - COMA [None]
  - CONVULSION [None]
  - ELECTROCARDIOGRAM QRS COMPLEX PROLONGED [None]
  - ELECTROMECHANICAL DISSOCIATION [None]
  - ERUCTATION [None]
  - FOREIGN BODY ASPIRATION [None]
  - HEART RATE DECREASED [None]
  - MULTIPLE DRUG OVERDOSE INTENTIONAL [None]
  - SUICIDE ATTEMPT [None]
  - UNEVALUABLE EVENT [None]
  - VOMITING [None]
